FAERS Safety Report 7793105-9 (Version None)
Quarter: 2011Q3

REPORT INFORMATION
  Report Type: 
  Country: None (occurrence: None)
  Receive Date: 20110930
  Receipt Date: 20110930
  Transmission Date: 20111222
  Serious: Yes (Other)
  Sender: FDA-Public Use
  Company Number: None

PATIENT
  Age: 72 Year
  Sex: Female
  Weight: 113.3993 kg

DRUGS (1)
  1. PRADAXA [Suspect]
     Dates: start: 20110501

REACTIONS (3)
  - SKIN LESION [None]
  - SECRETION DISCHARGE [None]
  - OEDEMA PERIPHERAL [None]
